FAERS Safety Report 12464068 (Version 1)
Quarter: 2016Q2

REPORT INFORMATION
  Report Type: Spontaneous
  Country: US (occurrence: None)
  Receive Date: 20160613
  Receipt Date: 20160613
  Transmission Date: 20160815
  Serious: Yes (Other)
  Sender: FDA-Public Use
  Company Number: None

PATIENT
  Age: 63 Year
  Sex: Female
  Weight: 78.47 kg

DRUGS (7)
  1. ESOMEPRAZOLE 40 MG [Suspect]
     Active Substance: ESOMEPRAZOLE
     Indication: GASTROOESOPHAGEAL REFLUX DISEASE
     Dosage: 1 CAPSULE ONCE DAILY 1/2 HR PRIOR TO BREAKFAST
     Route: 048
     Dates: start: 20150825, end: 20150925
  2. BIOTIN [Concomitant]
     Active Substance: BIOTIN
  3. FOLIC ACID. [Concomitant]
     Active Substance: FOLIC ACID
  4. PLAQUENIL [Concomitant]
     Active Substance: HYDROXYCHLOROQUINE SULFATE
  5. VENLAFAXINE [Concomitant]
     Active Substance: VENLAFAXINE HYDROCHLORIDE
  6. METHOTREXATE SODIUM. [Concomitant]
     Active Substance: METHOTREXATE SODIUM
  7. NEXIUM [Concomitant]
     Active Substance: ESOMEPRAZOLE MAGNESIUM

REACTIONS (4)
  - Therapeutic response changed [None]
  - Nausea [None]
  - Drug ineffective [None]
  - Product substitution issue [None]
